FAERS Safety Report 8558078-X (Version None)
Quarter: 2012Q3

REPORT INFORMATION
  Report Type: 
  Country: None (occurrence: None)
  Receive Date: 20120801
  Receipt Date: 20120731
  Transmission Date: 20120928
  Serious: No
  Sender: FDA-Public Use
  Company Number: PR-BAYER-2012-077136

PATIENT
  Sex: Female

DRUGS (1)
  1. GADAVIST [Suspect]
     Indication: SCAN
     Dosage: 7.5 UNK
     Dates: start: 20120627, end: 20120627

REACTIONS (1)
  - URTICARIA [None]
